FAERS Safety Report 8464377-2 (Version None)
Quarter: 2012Q2

REPORT INFORMATION
  Report Type: 
  Country: None (occurrence: None)
  Receive Date: 20120626
  Receipt Date: 20120613
  Transmission Date: 20120825
  Serious: Yes (Other)
  Sender: FDA-Public Use
  Company Number: CO-AMGEN-COLSP2012038477

PATIENT
  Age: 72 Year
  Sex: Female

DRUGS (5)
  1. GLUCOSAMINE [Concomitant]
     Indication: CHONDROPATHY
     Dosage: 1500 MG ONCE A DAY ORALLY
     Route: 048
     Dates: start: 20050101
  2. CALCIUM [Concomitant]
     Indication: ANKYLOSING SPONDYLITIS
     Dosage: 1 MG, 1X/DAY
     Route: 048
  3. ENBREL [Suspect]
     Indication: ANKYLOSING SPONDYLITIS
     Dosage: 50 MG, WEEKLY
     Route: 058
     Dates: start: 20120401
  4. OMEGA                              /01454401/ [Concomitant]
     Dosage: UNK
  5. LEVOTHYROXINE SODIUM [Concomitant]
     Indication: HYPOTHYROIDISM
     Dosage: UNK
     Route: 048
     Dates: start: 20050101

REACTIONS (5)
  - INJECTION SITE PRURITUS [None]
  - INJECTION SITE PAIN [None]
  - SKIN DISCOLOURATION [None]
  - INJECTION SITE REACTION [None]
  - ANKYLOSING SPONDYLITIS [None]
